FAERS Safety Report 15841651 (Version 2)
Quarter: 2019Q2

REPORT INFORMATION
  Report Type: Spontaneous
  Country: FR (occurrence: FR)
  Receive Date: 20190118
  Receipt Date: 20190417
  Transmission Date: 20190711
  Serious: Yes (Hospitalization)
  Sender: FDA-Public Use
  Company Number: FR-AUROBINDO-AUR-APL-2019-000543

PATIENT
  Age: 65 Year
  Sex: Female

DRUGS (4)
  1. TRAMADOL. [Suspect]
     Active Substance: TRAMADOL
     Indication: PAIN IN EXTREMITY
     Dosage: 200 MILLIGRAM, DAILY
     Route: 065
     Dates: start: 20150930
  2. GILENYA [Suspect]
     Active Substance: FINGOLIMOD HYDROCHLORIDE
     Dosage: 0.5 MILLIGRAM, 6 FOR WEEK
     Route: 065
     Dates: start: 20180405
  3. SOLU-MEDROL [Suspect]
     Active Substance: METHYLPREDNISOLONE SODIUM SUCCINATE
     Indication: MULTIPLE SCLEROSIS
     Dosage: 1 UNK, EVERY MONTH
     Route: 065
     Dates: start: 201302
  4. GILENYA [Suspect]
     Active Substance: FINGOLIMOD HYDROCHLORIDE
     Indication: MULTIPLE SCLEROSIS
     Dosage: 1 UNK, DAILY
     Route: 065
     Dates: start: 20140930, end: 20180404

REACTIONS (2)
  - Humerus fracture [Recovered/Resolved with Sequelae]
  - Fall [Recovered/Resolved]

NARRATIVE: CASE EVENT DATE: 20160403
